FAERS Safety Report 4375807-X (Version None)
Quarter: 2004Q2

REPORT INFORMATION
  Report Type: 
  Country: None (occurrence: None)
  Receive Date: 20040609
  Receipt Date: 20040609
  Transmission Date: 20050107
  Serious: Yes (Life-Threatening)
  Sender: FDA-Public Use
  Company Number: None

PATIENT
  Sex: Male

DRUGS (6)
  1. NEOSYNEPHRINE [Suspect]
     Indication: HYPOTENSION
     Dosage: 50 MG GIVE ONCE
     Dates: start: 20040324
  2. AMPICILLIN [Concomitant]
  3. GENTAMICIN [Concomitant]
  4. PROMETHAZINE [Concomitant]
  5. METRONIDAZOLE [Concomitant]
  6. ACETAMINOPHEN [Concomitant]

REACTIONS (4)
  - ABDOMINAL PAIN [None]
  - BLOOD PRESSURE DECREASED [None]
  - BLOOD PRESSURE INCREASED [None]
  - MEDICATION ERROR [None]
